FAERS Safety Report 17214541 (Version 1)
Quarter: 2020Q1

REPORT INFORMATION
  Report Type: Spontaneous
  Country: US (occurrence: US)
  Receive Date: 20191228
  Receipt Date: 20191228
  Transmission Date: 20200409
  Serious: Yes (Other)
  Sender: FDA-Public Use
  Company Number: None

PATIENT
  Age: 51 Year
  Sex: Female
  Weight: 62.1 kg

DRUGS (3)
  1. LIPISIDE [Concomitant]
  2. JANUVIA [Suspect]
     Active Substance: SITAGLIPTIN PHOSPHATE
     Indication: DIABETES MELLITUS
     Dosage: ?          QUANTITY:1 TABLET(S);OTHER ROUTE:ORAL?
     Dates: start: 20190701, end: 20190910
  3. METFORMIN [Concomitant]
     Active Substance: METFORMIN HYDROCHLORIDE

REACTIONS (2)
  - Glaucoma [None]
  - Mydriasis [None]

NARRATIVE: CASE EVENT DATE: 20191001
